FAERS Safety Report 21083247 (Version 1)
Quarter: 2022Q3

REPORT INFORMATION
  Report Type: Spontaneous
  Country: MX (occurrence: MX)
  Receive Date: 20220714
  Receipt Date: 20220714
  Transmission Date: 20221027
  Serious: Yes (Other)
  Sender: FDA-Public Use
  Company Number: MX-PFIZER INC-202200956333

PATIENT
  Age: 62 Year
  Sex: Female

DRUGS (1)
  1. HALCION [Suspect]
     Active Substance: TRIAZOLAM
     Dosage: UNK

REACTIONS (5)
  - Neoplasm malignant [Unknown]
  - Nervousness [Unknown]
  - Anxiety [Unknown]
  - Feeling of despair [Unknown]
  - Negative thoughts [Unknown]
